FAERS Safety Report 14154001 (Version 1)
Quarter: 2017Q4

REPORT INFORMATION
  Report Type: Spontaneous
  Country: US (occurrence: US)
  Receive Date: 20171102
  Receipt Date: 20171102
  Transmission Date: 20180321
  Serious: No
  Sender: FDA-Public Use
  Company Number: US-009507513-1711USA000264

PATIENT
  Age: 24 Year
  Sex: Female

DRUGS (1)
  1. NEXPLANON [Suspect]
     Active Substance: ETONOGESTREL
     Dosage: UNK
     Route: 059
     Dates: start: 201702

REACTIONS (3)
  - Electric shock [Recovering/Resolving]
  - Paraesthesia [Recovering/Resolving]
  - Implant site irritation [Recovering/Resolving]

NARRATIVE: CASE EVENT DATE: 20171031
